FAERS Safety Report 5907298-9 (Version None)
Quarter: 2008Q4

REPORT INFORMATION
  Report Type: 
  Country: None (occurrence: None)
  Receive Date: 20081003
  Receipt Date: 20080930
  Transmission Date: 20090506
  Serious: Yes (Other)
  Sender: FDA-Public Use
  Company Number: PHEH2008US08646

PATIENT
  Age: 80 Year
  Sex: Female

DRUGS (3)
  1. TEKTURNA [Suspect]
     Indication: HYPERTENSION
     Dosage: 150 MG, QD
     Dates: start: 20080701, end: 20080901
  2. PREMARIN [Concomitant]
     Dosage: UNK
  3. THYROID THERAPY [Concomitant]
     Dosage: UNK

REACTIONS (5)
  - ARRHYTHMIA [None]
  - DYSPHAGIA [None]
  - DYSPNOEA [None]
  - RASH [None]
  - TACHYCARDIA [None]
